FAERS Safety Report 10905960 (Version 3)
Quarter: 2015Q3

REPORT INFORMATION
  Report Type: Spontaneous
  Country: US (occurrence: US)
  Receive Date: 20150311
  Receipt Date: 20150922
  Transmission Date: 20151125
  Serious: No
  Sender: FDA-Public Use
  Company Number: US-GLAXOSMITHKLINE-US2015024349

PATIENT
  Sex: Female
  Weight: 89 kg

DRUGS (8)
  1. JANUMET [Concomitant]
     Active Substance: METFORMIN HYDROCHLORIDE\SITAGLIPTIN PHOSPHATE
  2. PANTOPRAZOLE [Concomitant]
     Active Substance: PANTOPRAZOLE SODIUM
  3. TEMAZEPAM. [Concomitant]
     Active Substance: TEMAZEPAM
  4. ADVAIR HFA [Suspect]
     Active Substance: FLUTICASONE PROPIONATE\SALMETEROL XINAFOATE
     Indication: RHINORRHOEA
     Dosage: 2 PUFF(S), QD
     Route: 055
     Dates: start: 201408
  5. ADVAIR HFA [Suspect]
     Active Substance: FLUTICASONE PROPIONATE\SALMETEROL XINAFOATE
     Indication: COUGH
  6. HYDROCHLOROTHIAZIDE. [Concomitant]
     Active Substance: HYDROCHLOROTHIAZIDE
  7. LEVOTHYROXINE. [Concomitant]
     Active Substance: LEVOTHYROXINE
  8. CELEBREX [Concomitant]
     Active Substance: CELECOXIB

REACTIONS (6)
  - Product quality issue [Unknown]
  - Cough [Recovering/Resolving]
  - Drug ineffective [Not Recovered/Not Resolved]
  - Sneezing [Recovering/Resolving]
  - Off label use [Unknown]
  - Malaise [Recovering/Resolving]
